FAERS Safety Report 9524516 (Version 1)
Quarter: 2013Q1

REPORT INFORMATION
  Report Type: Spontaneous
  Country: US (occurrence: None)
  Receive Date: 20130305
  Receipt Date: 20130305
  Transmission Date: 20140127
  Serious: Yes (Other)
  Sender: FDA-Public Use
  Company Number: 163-21880-12021060

PATIENT
  Age: 87 Year
  Sex: Male
  Weight: 54.43 kg

DRUGS (4)
  1. REVLIMID [Suspect]
     Indication: PLASMA CELL MYELOMA
     Dosage: 10 MG, 1 IN 1 D, PO
     Route: 048
     Dates: start: 20111215, end: 20120130
  2. ALLOPURINOL (ALLOPURINOL) (UNKNOWN) [Concomitant]
  3. LISINOPRIL (LISINOPRIL) (UNKNOWN) [Concomitant]
  4. DECADRON [Concomitant]

REACTIONS (2)
  - Pancytopenia [None]
  - Rib fracture [None]
